FAERS Safety Report 4957660-6 (Version None)
Quarter: 2006Q1

REPORT INFORMATION
  Report Type: 
  Country: None (occurrence: None)
  Receive Date: 20060327
  Receipt Date: 20060313
  Transmission Date: 20060701
  Serious: Yes (Life-Threatening, Hospitalization)
  Sender: FDA-Public Use
  Company Number: 0603015

PATIENT
  Age: 70 Year
  Sex: Female

DRUGS (3)
  1. CEFUROXIME FOR INJECTION USP [Suspect]
     Indication: ANTIBIOTIC PROPHYLAXIS
     Dosage: 750MG I.V.
     Route: 042
  2. DIAZEPAM [Concomitant]
  3. I.V. OF NORMAL SALINE [Concomitant]

REACTIONS (4)
  - ANGINA PECTORIS [None]
  - ARTERIOSPASM CORONARY [None]
  - DRUG HYPERSENSITIVITY [None]
  - MYOCARDIAL INFARCTION [None]
